FAERS Safety Report 8452035 (Version 7)
Quarter: 2013Q4

REPORT INFORMATION
  Report Type: Report from Study
  Country: FR (occurrence: FR)
  Receive Date: 20120309
  Receipt Date: 20131007
  Transmission Date: 20140711
  Serious: Yes (Hospitalization)
  Sender: FDA-Public Use
  Company Number: FR-ROCHE-1044158

PATIENT
  Age: 57 Year
  Sex: Male
  Weight: 78 kg

DRUGS (16)
  1. BLINDED TOCILIZUMAB [Suspect]
     Indication: RHEUMATOID ARTHRITIS
     Dosage: DATE OF MOST RECENT DOSE PRIOR TO SAE, 6 JUL 2011
     Route: 058
     Dates: start: 20110121
  2. BLINDED TOCILIZUMAB [Suspect]
     Indication: RHEUMATOID ARTHRITIS
     Dosage: DATE OF MOST RECENT DOSE PRIOR TO SAE, 15 JUN 2011
     Route: 042
     Dates: start: 20110121
  3. TOCILIZUMAB [Suspect]
     Indication: RHEUMATOID ARTHRITIS
     Dosage: DATE OF MOST RECENT DOSE PRIOR TO SAE, 18 JAN 2012, LAST DOSE TAKEN : 162 MG
     Route: 058
     Dates: start: 20110708
  4. METHOTREXATE [Concomitant]
     Indication: RHEUMATOID ARTHRITIS
     Route: 048
     Dates: start: 20090205, end: 20120301
  5. METHOTREXATE [Concomitant]
     Route: 048
     Dates: start: 20120302
  6. FOLIC ACID [Concomitant]
     Indication: RHEUMATOID ARTHRITIS
     Route: 048
     Dates: start: 20090205
  7. PREDNISONE [Concomitant]
     Indication: RHEUMATOID ARTHRITIS
     Route: 048
     Dates: start: 20101027, end: 20120224
  8. PREDNISONE [Concomitant]
     Route: 065
  9. LOPRAZOLAM [Concomitant]
     Route: 048
     Dates: start: 2008
  10. PARACETAMOL [Concomitant]
     Indication: RHEUMATOID ARTHRITIS
     Route: 048
  11. DICLOFENAC [Concomitant]
     Route: 048
     Dates: start: 20110123, end: 20120217
  12. TRAMADOL [Concomitant]
     Route: 048
     Dates: start: 20120123, end: 20120217
  13. PREDNISOLONE [Concomitant]
     Route: 065
     Dates: start: 20120225, end: 20120304
  14. PREDNISOLONE [Concomitant]
     Route: 065
     Dates: start: 20120305, end: 20120307
  15. PREDNISOLONE [Concomitant]
     Route: 065
     Dates: start: 20120308, end: 20120310
  16. LIPANTHYL [Concomitant]
     Route: 048
     Dates: start: 20120301

REACTIONS (1)
  - Chillblains [Recovered/Resolved]
